FAERS Safety Report 11061803 (Version 1)
Quarter: 2015Q2

REPORT INFORMATION
  Report Type: Spontaneous
  Country: US (occurrence: None)
  Receive Date: 20150423
  Receipt Date: 20150423
  Transmission Date: 20150821
  Serious: No
  Sender: FDA-Public Use
  Company Number: None

PATIENT
  Age: 70 Year
  Sex: Female
  Weight: 59.88 kg

DRUGS (4)
  1. NIACIN (SUBSEQUENT TO THE CRESTOR FIASCO) [Concomitant]
  2. ALBUTEROL. [Concomitant]
     Active Substance: ALBUTEROL
  3. MULTI-VITE [Concomitant]
  4. CRESTOR [Suspect]
     Active Substance: ROSUVASTATIN CALCIUM
     Indication: BLOOD CHOLESTEROL INCREASED
     Dosage: 1 PILL
     Route: 048
     Dates: start: 20141114, end: 20141207

REACTIONS (8)
  - Headache [None]
  - Pain [None]
  - Pain in extremity [None]
  - Angina pectoris [None]
  - Musculoskeletal pain [None]
  - Chest pain [None]
  - Muscle spasms [None]
  - Neck pain [None]

NARRATIVE: CASE EVENT DATE: 20141114
